FAERS Safety Report 20411826 (Version 1)
Quarter: 2022Q1

REPORT INFORMATION
  Report Type: Spontaneous
  Country: JP (occurrence: JP)
  Receive Date: 20220201
  Receipt Date: 20220201
  Transmission Date: 20220423
  Serious: Yes (Other)
  Sender: FDA-Public Use
  Company Number: JP-ELI_LILLY_AND_COMPANY-JP202201008643AA

PATIENT
  Age: 4 Year
  Sex: Male

DRUGS (1)
  1. SOMATROPIN [Suspect]
     Active Substance: SOMATROPIN
     Indication: Chondrodystrophy
     Route: 058

REACTIONS (3)
  - Sleep apnoea syndrome [Not Recovered/Not Resolved]
  - Neck pain [Unknown]
  - Motor developmental delay [Recovering/Resolving]
